FAERS Safety Report 21601301 (Version 1)
Quarter: 2022Q4

REPORT INFORMATION
  Report Type: Spontaneous
  Country: GB (occurrence: GB)
  Receive Date: 20221116
  Receipt Date: 20221116
  Transmission Date: 20230113
  Serious: Yes (Hospitalization, Other)
  Sender: FDA-Public Use
  Company Number: GB-MHRA-MED-202211071650241940-DSCBJ

PATIENT
  Sex: Female

DRUGS (1)
  1. LINEZOLID [Suspect]
     Active Substance: LINEZOLID
     Indication: Adverse drug reaction
     Dosage: 600 MILLIGRAM, TWO TIMES A DAY (600MG BD)
     Route: 065

REACTIONS (1)
  - Lactic acidosis [Recovering/Resolving]
